FAERS Safety Report 5006039-X (Version None)
Quarter: 2006Q1

REPORT INFORMATION
  Report Type: 
  Country: None (occurrence: None)
  Receive Date: 20060320
  Receipt Date: 20050127
  Transmission Date: 20060701
  Serious: Yes (Other)
  Sender: FDA-Public Use
  Company Number: 2005-01-1893

PATIENT
  Age: 37 Year
  Sex: Female
  Weight: 106.5953 kg

DRUGS (3)
  1. PEG-INTRON [Suspect]
     Dosage: 150 MGC QWK SUBCUTANEOUS
     Route: 058
     Dates: start: 20050107, end: 20050127
  2. REBETOL [Suspect]
     Dosage: ORAL
     Route: 048
     Dates: start: 20050107, end: 20050127
  3. LEXAPRO [Concomitant]

REACTIONS (3)
  - AGGRESSION [None]
  - MOOD SWINGS [None]
  - SUICIDAL IDEATION [None]
